FAERS Safety Report 23695844 (Version 3)
Quarter: 2024Q2

REPORT INFORMATION
  Report Type: Report from Study
  Country: US (occurrence: US)
  Receive Date: 20240402
  Receipt Date: 20240521
  Transmission Date: 20240716
  Serious: Yes (Hospitalization, Other)
  Sender: FDA-Public Use
  Company Number: US-HORIZON THERAPEUTICS-HZN-2023-002843

PATIENT

DRUGS (2)
  1. TEPEZZA [Suspect]
     Active Substance: TEPROTUMUMAB-TRBW
     Indication: Endocrine ophthalmopathy
     Dosage: FIRST INFUSION
     Route: 042
     Dates: start: 20230322
  2. TEPEZZA [Suspect]
     Active Substance: TEPROTUMUMAB-TRBW
     Dosage: UNK INFUSION
     Route: 042

REACTIONS (20)
  - Cardiac disorder [Unknown]
  - Gastrointestinal haemorrhage [Unknown]
  - Hypoaesthesia [Recovering/Resolving]
  - Blood pressure increased [Unknown]
  - Heart rate abnormal [Unknown]
  - Hypoacusis [Not Recovered/Not Resolved]
  - Blood glucose increased [Unknown]
  - Alopecia [Not Recovered/Not Resolved]
  - Muscle spasms [Unknown]
  - Fatigue [Unknown]
  - Muscle spasms [Unknown]
  - Swelling of eyelid [Unknown]
  - Nasopharyngitis [Unknown]
  - Vision blurred [Unknown]
  - Visual impairment [Unknown]
  - Altered visual depth perception [Unknown]
  - Symptom recurrence [Unknown]
  - Visual impairment [Unknown]
  - Diplopia [Unknown]
  - Off label use [Unknown]

NARRATIVE: CASE EVENT DATE: 20230101
